FAERS Safety Report 22357125 (Version 1)
Quarter: 2023Q2

REPORT INFORMATION
  Report Type: Spontaneous
  Country: US (occurrence: US)
  Receive Date: 20230524
  Receipt Date: 20230524
  Transmission Date: 20230722
  Serious: Yes (Other)
  Sender: FDA-Public Use
  Company Number: US-009507513-2305USA007014

PATIENT
  Sex: Female

DRUGS (1)
  1. DIFICID [Suspect]
     Active Substance: FIDAXOMICIN
     Indication: Clostridium difficile immunisation
     Dosage: 200 MILLIGRAM, Q12H
     Route: 048
     Dates: start: 2023

REACTIONS (1)
  - Clostridium difficile infection [Not Recovered/Not Resolved]

NARRATIVE: CASE EVENT DATE: 20230101
